FAERS Safety Report 8989261 (Version 4)
Quarter: 2013Q4

REPORT INFORMATION
  Report Type: Report from Study
  Country: CA (occurrence: CA)
  Receive Date: 20121228
  Receipt Date: 20131202
  Transmission Date: 20140711
  Serious: Yes (Hospitalization, Other)
  Sender: FDA-Public Use
  Company Number: PHHY2012CA120577

PATIENT
  Age: 77 Year
  Sex: Female

DRUGS (1)
  1. SANDOSTATIN LAR [Suspect]
     Indication: NEUROENDOCRINE TUMOUR
     Dosage: 30 MG, QMO
     Route: 030
     Dates: start: 20121120

REACTIONS (6)
  - Fall [Unknown]
  - Upper limb fracture [Unknown]
  - Blood pressure increased [Unknown]
  - Back pain [Unknown]
  - Blood sodium decreased [Unknown]
  - Headache [Unknown]
